FAERS Safety Report 17743225 (Version 2)
Quarter: 2020Q2

REPORT INFORMATION
  Report Type: Spontaneous
  Country: CY (occurrence: CY)
  Receive Date: 20200504
  Receipt Date: 20200522
  Transmission Date: 20200714
  Serious: Yes (Other)
  Sender: FDA-Public Use
  Company Number: CY-BAYER-2020-071431

PATIENT
  Age: 83 Year
  Sex: Male

DRUGS (2)
  1. XOFIGO [Suspect]
     Active Substance: RADIUM RA-223 DICHLORIDE
     Indication: METASTASES TO BONE
     Dosage: UNK
  2. XOFIGO [Suspect]
     Active Substance: RADIUM RA-223 DICHLORIDE
     Indication: CANCER PAIN
     Dosage: UNK
     Dates: start: 20200213, end: 20200213

REACTIONS (6)
  - Pain [None]
  - Product use in unapproved indication [None]
  - Off label use [None]
  - Haematuria [None]
  - Bladder cancer [None]
  - Renal failure [None]

NARRATIVE: CASE EVENT DATE: 20200227
